FAERS Safety Report 8084185-4 (Version None)
Quarter: 2012Q1

REPORT INFORMATION
  Report Type: 
  Country: None (occurrence: None)
  Receive Date: 20120128
  Receipt Date: 20110214
  Transmission Date: 20120608
  Serious: No
  Sender: FDA-Public Use
  Company Number: US-ABBOTT-11P-163-0704857-00

PATIENT
  Sex: Female
  Weight: 90.8 kg

DRUGS (11)
  1. VITAMIN D [Concomitant]
     Indication: VITAMIN SUPPLEMENTATION
  2. ENTOCORT EC [Concomitant]
     Indication: NAUSEA
  3. ESTRA PATCH [Concomitant]
     Indication: OESTROGEN REPLACEMENT THERAPY
  4. SINGULAIR [Concomitant]
     Indication: PRODUCT USED FOR UNKNOWN INDICATION
  5. PROBIOTIC [Concomitant]
     Indication: PRODUCT USED FOR UNKNOWN INDICATION
  6. LORATADINE [Concomitant]
     Indication: PRODUCT USED FOR UNKNOWN INDICATION
  7. MULTI-VITAMIN [Concomitant]
     Indication: VITAMIN SUPPLEMENTATION
  8. ENTOCORT EC [Concomitant]
     Indication: CROHN'S DISEASE
     Dosage: 6 MG DAILY
  9. EFFEXOR [Concomitant]
     Indication: ANXIETY
  10. HUMIRA [Suspect]
     Indication: CROHN'S DISEASE
     Dates: start: 20100801
  11. NASONEX [Concomitant]
     Indication: PRODUCT USED FOR UNKNOWN INDICATION

REACTIONS (3)
  - CONFUSIONAL STATE [None]
  - OEDEMA PERIPHERAL [None]
  - URINARY HESITATION [None]
